FAERS Safety Report 5896264-8 (Version None)
Quarter: 2008Q3

REPORT INFORMATION
  Report Type: 
  Country: None (occurrence: None)
  Receive Date: 20080924
  Receipt Date: 20070828
  Transmission Date: 20090109
  Serious: Yes (Other)
  Sender: FDA-Public Use
  Company Number: US-BAYER-200710805BWH

PATIENT
  Age: 57 Year
  Sex: Female

DRUGS (1)
  1. AVELOX [Suspect]
     Indication: URINARY TRACT INFECTION
     Dosage: TOTAL DAILY DOSE: 400 MG  UNIT DOSE: 400 MG
     Route: 048
     Dates: start: 20061127

REACTIONS (9)
  - ANAPHYLACTIC SHOCK [None]
  - COLD SWEAT [None]
  - LIP SWELLING [None]
  - LOSS OF CONSCIOUSNESS [None]
  - OEDEMA MOUTH [None]
  - ORAL PRURITUS [None]
  - PRURITUS GENERALISED [None]
  - PULSE ABSENT [None]
  - UNRESPONSIVE TO STIMULI [None]
